FAERS Safety Report 15825365 (Version 1)
Quarter: 2019Q1

REPORT INFORMATION
  Report Type: Spontaneous
  Country: US (occurrence: US)
  Receive Date: 20190115
  Receipt Date: 20190115
  Transmission Date: 20190417
  Serious: No
  Sender: FDA-Public Use
  Company Number: US-ASTRAZENECA-2019SE00181

PATIENT
  Sex: Female

DRUGS (1)
  1. BYDUREON [Suspect]
     Active Substance: EXENATIDE
     Route: 065

REACTIONS (6)
  - Injection site pain [Unknown]
  - Blood glucose abnormal [Unknown]
  - Injection site pruritus [Unknown]
  - Diarrhoea [Unknown]
  - Glycosylated haemoglobin increased [Unknown]
  - Weight increased [Unknown]
